FAERS Safety Report 14114184 (Version 1)
Quarter: 2017Q4

REPORT INFORMATION
  Report Type: Spontaneous
  Country: PT (occurrence: PT)
  Receive Date: 20171023
  Receipt Date: 20171023
  Transmission Date: 20180321
  Serious: Yes (Other)
  Sender: FDA-Public Use
  Company Number: PHHY2017PT152809

PATIENT
  Age: 67 Year
  Sex: Female

DRUGS (1)
  1. QUETIAPINE SANDOZ [Suspect]
     Active Substance: QUETIAPINE
     Indication: MENTAL DISORDER
     Dosage: 300 MG, UNK
     Route: 048

REACTIONS (3)
  - Psychiatric decompensation [Recovered/Resolved]
  - Drug ineffective [Recovered/Resolved]
  - Oedema peripheral [Recovered/Resolved]
